FAERS Safety Report 25319302 (Version 2)
Quarter: 2025Q2

REPORT INFORMATION
  Report Type: Spontaneous
  Country: JP (occurrence: JP)
  Receive Date: 20250515
  Receipt Date: 20250606
  Transmission Date: 20250716
  Serious: Yes (Other)
  Sender: BAYER HEALTHCARE PHARMACEUTICALS INC.
  Company Number: JP-BAYER-2025A064432

PATIENT
  Age: 87 Year
  Sex: Male

DRUGS (1)
  1. NUBEQA [Suspect]
     Active Substance: DAROLUTAMIDE
     Indication: Prostate cancer
     Dosage: 600 MG/DAY
     Route: 048
     Dates: end: 20250302

REACTIONS (4)
  - Cerebral infarction [Recovered/Resolved with Sequelae]
  - Hemiplegia [None]
  - Dysphagia [None]
  - Wrong technique in product usage process [None]

NARRATIVE: CASE EVENT DATE: 20250302
